FAERS Safety Report 12008312 (Version 1)
Quarter: 2016Q1

REPORT INFORMATION
  Report Type: Report from Study
  Country: US (occurrence: US)
  Receive Date: 20160205
  Receipt Date: 20160205
  Transmission Date: 20160526
  Serious: No
  Sender: FDA-Public Use
  Company Number: US-ABBVIE-15K-163-1442746-00

PATIENT
  Sex: Female
  Weight: 38.59 kg

DRUGS (2)
  1. HUMIRA [Suspect]
     Active Substance: ADALIMUMAB
     Indication: UVEITIS
  2. HUMIRA [Suspect]
     Active Substance: ADALIMUMAB
     Indication: PSORIATIC ARTHROPATHY
     Route: 058
     Dates: start: 201101

REACTIONS (10)
  - Pyrexia [Unknown]
  - Epistaxis [Unknown]
  - Nasopharyngitis [Unknown]
  - Vitamin D decreased [Unknown]
  - Influenza [Unknown]
  - Pharyngitis streptococcal [Unknown]
  - Injection site pain [Recovered/Resolved]
  - Pharyngitis streptococcal [Recovered/Resolved]
  - Pneumonia [Unknown]
  - Asthma [Unknown]
